FAERS Safety Report 9052247 (Version 1)
Quarter: 2013Q1

REPORT INFORMATION
  Report Type: Spontaneous
  Country: GB (occurrence: GB)
  Receive Date: 20130206
  Receipt Date: 20130206
  Transmission Date: 20140127
  Serious: Yes (Other)
  Sender: FDA-Public Use
  Company Number: GB-009507513-1302GBR000571

PATIENT
  Sex: Female

DRUGS (1)
  1. MIRTAZAPINE [Suspect]
     Route: 048

REACTIONS (16)
  - Anxiety [Unknown]
  - Decreased appetite [Unknown]
  - Burning sensation [Unknown]
  - Dry throat [Unknown]
  - Pyrexia [Unknown]
  - Insomnia [Unknown]
  - Sensation of foreign body [Unknown]
  - Malocclusion [Unknown]
  - Dysphagia [Unknown]
  - Tongue blistering [Unknown]
  - Hyperhidrosis [Unknown]
  - Weight decreased [Unknown]
  - Withdrawal syndrome [Unknown]
  - Dizziness [Unknown]
  - Arthralgia [Unknown]
  - Paraesthesia [Unknown]
